FAERS Safety Report 5238168-X (Version None)
Quarter: 2007Q1

REPORT INFORMATION
  Report Type: 
  Country: None (occurrence: None)
  Receive Date: 20070215
  Receipt Date: 20070202
  Transmission Date: 20070707
  Serious: Yes (Hospitalization)
  Sender: FDA-Public Use
  Company Number: PHRM2007FR00733

PATIENT
  Age: 40 Year
  Sex: Male

DRUGS (3)
  1. TEGRETOL [Suspect]
     Dosage: 400 MG, BID
     Route: 048
     Dates: end: 20061219
  2. TEGRETOL [Suspect]
     Dosage: 400 MG, TID
     Route: 048
     Dates: start: 20061220, end: 20070101
  3. ETHANOL [Suspect]
     Route: 048

REACTIONS (9)
  - CEREBELLAR SYNDROME [None]
  - DRUG INEFFECTIVE [None]
  - DRUG INTERACTION [None]
  - DRUG LEVEL ABOVE THERAPEUTIC [None]
  - FALL [None]
  - HYPOREFLEXIA [None]
  - LOSS OF CONSCIOUSNESS [None]
  - NYSTAGMUS [None]
  - SOMNOLENCE [None]
